FAERS Safety Report 5415227-X (Version None)
Quarter: 2007Q3

REPORT INFORMATION
  Report Type: 
  Country: None (occurrence: None)
  Receive Date: 20070813
  Receipt Date: 20070713
  Transmission Date: 20080115
  Serious: Yes (Death, Hospitalization)
  Sender: FDA-Public Use
  Company Number: 2007RR-05085

PATIENT
  Age: 87 Year
  Sex: Female

DRUGS (6)
  1. CO-AMOXICLAV (VLAVULANIC ACID, AMOXICILLIN TRIHYDRATE) UNKNOWN [Suspect]
     Indication: INFECTION
  2. TAMOXIFEN CITRATE [Suspect]
     Indication: BREAST CANCER
     Dosage: ORAL
     Route: 048
  3. ATENOLOL [Concomitant]
  4. BENDROFLUMETHIAZIDE (BENDROFLUMETHIAZIDE) [Concomitant]
  5. MELOXICAM [Concomitant]
  6. PREDNISOLONE [Concomitant]

REACTIONS (4)
  - CUTANEOUS VASCULITIS [None]
  - LEUKOCYTOCLASTIC VASCULITIS [None]
  - RENAL FAILURE [None]
  - SKIN ULCER [None]
